FAERS Safety Report 6200579-3 (Version None)
Quarter: 2009Q2

REPORT INFORMATION
  Report Type: 
  Country: None (occurrence: None)
  Receive Date: 20090522
  Receipt Date: 20090513
  Transmission Date: 20091009
  Serious: Yes (Other)
  Sender: FDA-Public Use
  Company Number: US-AMGEN-QUU343499

PATIENT
  Sex: Female

DRUGS (12)
  1. ENBREL [Suspect]
     Indication: PSORIASIS
     Route: 058
     Dates: start: 20090406
  2. IMURAN [Concomitant]
     Route: 048
  3. BISOPROLOL [Concomitant]
  4. HYOSCYAMINE [Concomitant]
  5. TRICOR [Concomitant]
  6. AMBIEN [Concomitant]
  7. FLEXERIL [Concomitant]
  8. DIPHENHYDRAMINE HCL [Concomitant]
  9. PROCHLORPERAZINE [Concomitant]
  10. PROPOXYPHENE HCL CAP [Concomitant]
  11. LIPITOR [Concomitant]
  12. NIASPAN [Concomitant]

REACTIONS (6)
  - ANXIETY [None]
  - ASTHENIA [None]
  - HYPOGLYCAEMIA [None]
  - PARAESTHESIA [None]
  - PYREXIA [None]
  - SYNCOPE [None]
